FAERS Safety Report 15149267 (Version 1)
Quarter: 2018Q3

REPORT INFORMATION
  Report Type: Spontaneous
  Country: US (occurrence: US)
  Receive Date: 20180716
  Receipt Date: 20180716
  Transmission Date: 20181010
  Serious: No
  Sender: FDA-Public Use
  Company Number: US-FOUNDATIONCONSUMERHC-2018-US-010399

PATIENT
  Age: 22 Year
  Sex: Female
  Weight: 54.43 kg

DRUGS (4)
  1. PLAN B ONE?STEP [Suspect]
     Active Substance: LEVONORGESTREL
     Indication: COITAL BLEEDING
     Dosage: 1.5MG
     Route: 048
     Dates: start: 20180602, end: 20180602
  2. UNSPECIFIED ALLERGY TABLET [Concomitant]
     Route: 048
  3. PLAN B ONE?STEP [Suspect]
     Active Substance: LEVONORGESTREL
     Indication: POST COITAL CONTRACEPTION
     Dosage: 1.5MG
     Route: 048
     Dates: start: 20180531, end: 20180531
  4. ORTHO?TRI?CYCLEN LO [Concomitant]
     Dosage: 1 DAILY AT 7:15AM
     Route: 048
     Dates: start: 20180601

REACTIONS (7)
  - Vaginal haemorrhage [Not Recovered/Not Resolved]
  - Breast tenderness [Recovered/Resolved]
  - Dysmenorrhoea [Not Recovered/Not Resolved]
  - Oligomenorrhoea [Recovered/Resolved]
  - Menstruation delayed [Recovered/Resolved]
  - Vaginal haemorrhage [Recovered/Resolved]
  - Nausea [Not Recovered/Not Resolved]

NARRATIVE: CASE EVENT DATE: 20180611
